FAERS Safety Report 10041841 (Version 1)
Quarter: 2014Q1

REPORT INFORMATION
  Report Type: Spontaneous
  Country: AU (occurrence: None)
  Receive Date: 20140325
  Receipt Date: 20140325
  Transmission Date: 20141002
  Serious: Yes (Other)
  Sender: FDA-Public Use
  Company Number: 2013000570

PATIENT
  Sex: 0

DRUGS (2)
  1. ACEON (PERINDOPRIL ERBUMINE) TABLET, 2MG [Suspect]
     Indication: HYPERTENSION
     Route: 048
     Dates: start: 19940712
  2. NATRILIX [Suspect]
     Indication: PRODUCT USED FOR UNKNOWN INDICATION

REACTIONS (5)
  - Hypochloraemia [None]
  - Dysgeusia [None]
  - Decreased appetite [None]
  - Nausea [None]
  - Hyponatraemia [None]
